FAERS Safety Report 4364523-6 (Version None)
Quarter: 2004Q2

REPORT INFORMATION
  Report Type: 
  Country: None (occurrence: None)
  Receive Date: 20040519
  Receipt Date: 20030828
  Transmission Date: 20050107
  Serious: Yes (Hospitalization)
  Sender: FDA-Public Use
  Company Number: 03P-163-0231154-00

PATIENT
  Age: 91 Year
  Sex: Female
  Weight: 110 kg

DRUGS (1)
  1. ERYTHROMYCINH BASE FILMTAB 250MG (ERYTHROMYCIN BASE FILMTABS) (ERYTHRO [Suspect]
     Indication: GASTRIC HYPOMOTILITY
     Dosage: 250 MG, 4 IN 1 D, PER ORAL
     Route: 048
     Dates: start: 20030717, end: 20030701

REACTIONS (2)
  - NAUSEA [None]
  - VOMITING [None]
